FAERS Safety Report 9097306 (Version 3)
Quarter: 2013Q2

REPORT INFORMATION
  Report Type: Spontaneous
  Country: DE (occurrence: JP)
  Receive Date: 20130212
  Receipt Date: 20130409
  Transmission Date: 20140414
  Serious: Yes (Life-Threatening, Hospitalization)
  Sender: FDA-Public Use
  Company Number: JP-BRACCO-006790

PATIENT
  Age: 72 Year
  Sex: Male
  Weight: 64 kg

DRUGS (7)
  1. IOPAMIRON [Suspect]
     Indication: ARTERIOGRAM CORONARY
     Route: 022
     Dates: start: 20130205, end: 20130205
  2. ISODINE [Concomitant]
  3. SIGMART [Concomitant]
  4. ISOTONIC SOLUTIONS [Concomitant]
  5. NITOROL [Concomitant]
  6. HEPARIN SODIUM [Concomitant]
  7. XYLOCAINE [Concomitant]

REACTIONS (2)
  - Anaphylactic shock [Recovered/Resolved]
  - Haemorrhagic diathesis [Recovered/Resolved]
